FAERS Safety Report 6091703-4 (Version None)
Quarter: 2009Q1

REPORT INFORMATION
  Report Type: 
  Country: None (occurrence: None)
  Receive Date: 20090225
  Receipt Date: 20080418
  Transmission Date: 20090719
  Serious: No
  Sender: FDA-Public Use
  Company Number: A0723671A

PATIENT
  Age: 28 Year
  Sex: Female

DRUGS (2)
  1. VALTREX [Suspect]
     Dosage: 1MG PER DAY
     Route: 048
     Dates: start: 20080315, end: 20080401
  2. NO CONCURRENT MEDICATION [Concomitant]

REACTIONS (3)
  - ABDOMINAL PAIN [None]
  - MENORRHAGIA [None]
  - METRORRHAGIA [None]
